FAERS Safety Report 5527550-9 (Version None)
Quarter: 2007Q4

REPORT INFORMATION
  Report Type: 
  Country: None (occurrence: None)
  Receive Date: 20071128
  Receipt Date: 20071119
  Transmission Date: 20080405
  Serious: Yes (Hospitalization)
  Sender: FDA-Public Use
  Company Number: FR-NOVOPROD-269470

PATIENT
  Age: 77 Year
  Sex: Male

DRUGS (7)
  1. NOVOLOG MIX 70/30 [Suspect]
     Indication: INSULIN-REQUIRING TYPE II DIABETES MELLITUS
     Dosage: 118 IU, QD
     Route: 058
     Dates: end: 20071101
  2. METFORMIN HCL [Concomitant]
     Indication: INSULIN-REQUIRING TYPE II DIABETES MELLITUS
     Dosage: 1.4 G, QD
     Route: 048
  3. FUROSEMIDE [Concomitant]
     Indication: CARDIAC FAILURE
     Dosage: 40 MG, QD
     Route: 048
  4. COVERSYL                           /00790701/ [Concomitant]
     Indication: HYPERTENSION
     Dosage: 4 MG, QD
     Route: 048
  5. BISOPROLOL FUMARATE [Concomitant]
     Indication: CARDIAC FAILURE
     Dosage: 5 MG, QD
     Route: 048
  6. OMEPRAZOLE [Concomitant]
     Dosage: 20 MG, QD
     Route: 048
  7. DIFFU K [Concomitant]

REACTIONS (3)
  - FALL [None]
  - HYPOGLYCAEMIC COMA [None]
  - HYPOTHERMIA [None]
